FAERS Safety Report 4637646-1 (Version None)
Quarter: 2005Q2

REPORT INFORMATION
  Report Type: 
  Country: None (occurrence: None)
  Receive Date: 20050418
  Receipt Date: 20050408
  Transmission Date: 20051028
  Serious: Yes (Life-Threatening)
  Sender: FDA-Public Use
  Company Number: JP-GLAXOSMITHKLINE-B0377491A

PATIENT
  Age: 80 Year
  Sex: Male

DRUGS (3)
  1. RETROVIR [Suspect]
     Dosage: 100MG VARIABLE DOSE
     Route: 048
     Dates: start: 19981101
  2. EPIVIR [Suspect]
     Dosage: 150MG TWICE PER DAY
     Route: 048
     Dates: start: 19981101
  3. VIRACEPT [Suspect]
     Route: 048
     Dates: start: 19981101, end: 20000531

REACTIONS (3)
  - ACUTE MYOCARDIAL INFARCTION [None]
  - ANGINA PECTORIS [None]
  - CHEST PAIN [None]
